FAERS Safety Report 6102753-3 (Version None)
Quarter: 2009Q1

REPORT INFORMATION
  Report Type: 
  Country: None (occurrence: None)
  Receive Date: 20090304
  Receipt Date: 20090225
  Transmission Date: 20090719
  Serious: Yes (Hospitalization)
  Sender: FDA-Public Use
  Company Number: JP-B.I. PHARMACEUTICALS,INC./RIDGEFIELD-2009-DE-01819GD

PATIENT
  Age: 75 Year
  Sex: Female

DRUGS (5)
  1. PRAMIPEXOLE DIHYDROCHLORIDE [Suspect]
     Indication: PARKINSON'S DISEASE
     Dosage: 3MG
  2. TALIPEXOLE [Suspect]
     Indication: PARKINSON'S DISEASE
     Dosage: .4MG
  3. CARBIDOPA AND LEVODOPA [Suspect]
     Indication: PARKINSON'S DISEASE
     Dosage: 400MG
  4. CARBIDOPA AND LEVODOPA [Suspect]
     Dosage: 650MG
  5. ENTACAPONE [Suspect]
     Indication: PARKINSON'S DISEASE
     Dosage: 700MG

REACTIONS (6)
  - ANXIETY [None]
  - CATATONIA [None]
  - DELUSION [None]
  - DYSPNOEA [None]
  - HALLUCINATION [None]
  - ON AND OFF PHENOMENON [None]
